FAERS Safety Report 14211641 (Version 2)
Quarter: 2018Q3

REPORT INFORMATION
  Report Type: Report from Study
  Country: DE (occurrence: DE)
  Receive Date: 20171122
  Receipt Date: 20180917
  Transmission Date: 20181010
  Serious: Yes (Other)
  Sender: FDA-Public Use
  Company Number: DE-ROCHE-1787435

PATIENT
  Age: 83 Year
  Sex: Male
  Weight: 94 kg

DRUGS (29)
  1. 5?FLUOROURACIL [Concomitant]
     Active Substance: FLUOROURACIL
     Route: 041
     Dates: start: 20141016
  2. CIPROBAY [Concomitant]
     Active Substance: CIPROFLOXACIN
     Indication: ERYSIPELAS
     Route: 048
     Dates: start: 20150420, end: 20150428
  3. MUCOFALK [Concomitant]
     Active Substance: HERBALS\PLANTAGO OVATA LEAF
     Indication: DIARRHOEA
     Route: 048
     Dates: start: 20150827
  4. NOVALGIN (METAMIZOLE SODIUM) [Concomitant]
     Active Substance: METAMIZOLE SODIUM
     Indication: PAIN
     Route: 048
     Dates: start: 20141016
  5. L?THYROXIN [Concomitant]
     Active Substance: LEVOTHYROXINE SODIUM
     Indication: HYPOTHYROIDISM
     Route: 048
  6. MONO?EMBOLEX [Concomitant]
     Active Substance: CERTOPARIN SODIUM
     Indication: THROMBOSIS PROPHYLAXIS
     Route: 058
     Dates: start: 20140826, end: 20141007
  7. SIMVAHEXAL [Concomitant]
     Active Substance: SIMVASTATIN
     Indication: CORONARY ARTERY DISEASE
     Route: 048
  8. FENTANYL. [Concomitant]
     Active Substance: FENTANYL
     Dosage: ONCE IN 3 DAYS
     Route: 065
     Dates: start: 20160105, end: 20160523
  9. LISINOPRIL. [Concomitant]
     Active Substance: LISINOPRIL
     Indication: HYPERTENSION
     Route: 048
  10. FENTANYL. [Concomitant]
     Active Substance: FENTANYL
     Route: 065
     Dates: start: 20160525
  11. DEXAMETHASON [Concomitant]
     Active Substance: DEXAMETHASONE
     Indication: VOMITING
     Dosage: DAY 1 OF CYCLE
     Route: 042
     Dates: start: 20150818, end: 20150915
  12. GRANISETRON [Concomitant]
     Active Substance: GRANISETRON
     Indication: VOMITING
     Dosage: DAY 1 OF CYCLE
     Route: 042
     Dates: start: 20150818, end: 20150915
  13. RED CELL CONCENTRATE [Concomitant]
     Indication: ANAEMIA
     Dosage: ON 01?MAR?2016 AND ON 24?MAY?2016
     Route: 042
  14. UNACID [Concomitant]
     Indication: INFECTION
     Route: 048
     Dates: start: 20150217, end: 20150301
  15. BEVACIZUMAB. [Suspect]
     Active Substance: BEVACIZUMAB
     Indication: COLORECTAL CANCER METASTATIC
     Dosage: DATE OF LAST DOSE PRIOR TO SAE: 28/OCT/2014
     Route: 042
     Dates: start: 20141016, end: 20160503
  16. OXALIPLATIN. [Concomitant]
     Active Substance: OXALIPLATIN
     Indication: COLORECTAL CANCER
     Dosage: 105?178 MG
     Route: 065
     Dates: start: 20141016
  17. AZOPT [Concomitant]
     Active Substance: BRINZOLAMIDE
     Indication: GLAUCOMA
     Route: 065
  18. TOREM [Concomitant]
     Active Substance: TORSEMIDE
     Indication: NEPHROPATHY
     Route: 048
  19. ZOPLICONE [Concomitant]
     Active Substance: ZOPICLONE
     Indication: SLEEP DISORDER
     Route: 048
     Dates: end: 20150216
  20. 5?FLUOROURACIL [Concomitant]
     Active Substance: FLUOROURACIL
     Indication: COLORECTAL CANCER
     Route: 040
     Dates: start: 20141016
  21. FOLINIC ACID [Concomitant]
     Active Substance: LEUCOVORIN
     Indication: COLORECTAL CANCER
     Route: 042
     Dates: start: 20141016
  22. MCP [Concomitant]
     Active Substance: METOCLOPRAMIDE HYDROCHLORIDE
     Indication: VOMITING
     Route: 048
     Dates: start: 20141110
  23. METOHEXAL [Concomitant]
     Active Substance: METOPROLOL SUCCINATE
     Indication: HYPERTENSION
     Route: 048
  24. TAVANIC [Concomitant]
     Active Substance: LEVOFLOXACIN
     Indication: NASOPHARYNGITIS
     Route: 048
     Dates: start: 20160308, end: 20160312
  25. XELODA [Suspect]
     Active Substance: CAPECITABINE
     Indication: COLORECTAL CANCER
     Dosage: 1000?2000 MG
     Route: 048
     Dates: start: 20150323, end: 20160517
  26. FENTANYL. [Concomitant]
     Active Substance: FENTANYL
     Indication: PAIN IN EXTREMITY
     Route: 065
     Dates: start: 20150216
  27. AMLODIPIN [Concomitant]
     Active Substance: AMLODIPINE BESYLATE
     Indication: HYPERTENSION
     Route: 048
  28. ASPIRIN. [Concomitant]
     Active Substance: ASPIRIN
     Indication: CORONARY ARTERY DISEASE
     Route: 048
  29. PANTOZOL [Concomitant]
     Active Substance: PANTOPRAZOLE SODIUM
     Route: 048
     Dates: start: 20140826

REACTIONS (14)
  - Diabetic ulcer [Not Recovered/Not Resolved]
  - Night sweats [Not Recovered/Not Resolved]
  - Pain in extremity [Not Recovered/Not Resolved]
  - Pain in extremity [Recovered/Resolved]
  - Anaemia [Not Recovered/Not Resolved]
  - Paronychia [Recovered/Resolved]
  - Squamous cell carcinoma [Not Recovered/Not Resolved]
  - Epistaxis [Not Recovered/Not Resolved]
  - Pain [Recovered/Resolved]
  - Sleep disorder [Not Recovered/Not Resolved]
  - Nasopharyngitis [Recovered/Resolved]
  - Fatigue [Not Recovered/Not Resolved]
  - Peripheral sensory neuropathy [Not Recovered/Not Resolved]
  - Hypoacusis [Not Recovered/Not Resolved]

NARRATIVE: CASE EVENT DATE: 201411
